FAERS Safety Report 6444383-X (Version None)
Quarter: 2009Q4

REPORT INFORMATION
  Report Type: 
  Country: None (occurrence: None)
  Receive Date: 20091110
  Receipt Date: 20090917
  Transmission Date: 20100525
  Serious: No
  Sender: FDA-Public Use
  Company Number: 1000008997

PATIENT
  Age: 48 Year
  Sex: Male

DRUGS (6)
  1. SAVELLA [Suspect]
     Indication: FIBROMYALGIA
     Dosage: 12.5 MG (12.5 MG, 1 IN 1 D), ORAL
     Route: 048
     Dates: start: 20090612, end: 20090612
  2. SAVELLA [Suspect]
     Dosage: 50 MG (25 MG, 2 IN 1 D), ORAL
     Route: 048
     Dates: start: 20090615, end: 20090615
  3. AMBIEN [Concomitant]
  4. NEXIUM [Concomitant]
  5. HUMIRA [Concomitant]
  6. MOBIC [Concomitant]

REACTIONS (3)
  - HEADACHE [None]
  - INFLUENZA LIKE ILLNESS [None]
  - URINARY HESITATION [None]
